FAERS Safety Report 7805911-2 (Version None)
Quarter: 2011Q4

REPORT INFORMATION
  Report Type: 
  Country: None (occurrence: None)
  Receive Date: 20111011
  Receipt Date: 20111003
  Transmission Date: 20120403
  Serious: No
  Sender: FDA-Public Use
  Company Number: US-BIOGENIDEC-2011BI037645

PATIENT
  Sex: Female

DRUGS (1)
  1. AVONEX [Suspect]
     Indication: MULTIPLE SCLEROSIS
     Route: 030
     Dates: start: 20110412, end: 20110920

REACTIONS (12)
  - INJECTION SITE PAIN [None]
  - MUSCLE SPASMS [None]
  - INFLUENZA LIKE ILLNESS [None]
  - MEMORY IMPAIRMENT [None]
  - FALL [None]
  - DIZZINESS [None]
  - MULTIPLE SCLEROSIS [None]
  - SKELETAL INJURY [None]
  - BONE PAIN [None]
  - DEPRESSION [None]
  - ARTHRALGIA [None]
  - BALANCE DISORDER [None]
